FAERS Safety Report 5088213-X (Version None)
Quarter: 2006Q3

REPORT INFORMATION
  Report Type: 
  Country: None (occurrence: None)
  Receive Date: 20060727
  Receipt Date: 20060602
  Transmission Date: 20061208
  Serious: Yes (Other)
  Sender: FDA-Public Use
  Company Number: 2006074842

PATIENT
  Age: 72 Year
  Sex: Male
  Weight: 95.709 kg

DRUGS (3)
  1. LYRICA [Suspect]
     Indication: DIABETIC NEUROPATHY
     Dosage: 150 MG (75 MG, 2 IN 1 D), ORAL
     Route: 048
     Dates: start: 20060316
  2. ASPIRIN [Concomitant]
  3. EXTRA STRENGTH TYLENOL [Concomitant]

REACTIONS (3)
  - DIPLOPIA [None]
  - EYE IRRITATION [None]
  - VISION BLURRED [None]
